APPROVED DRUG PRODUCT: GUANIDINE HYDROCHLORIDE
Active Ingredient: GUANIDINE HYDROCHLORIDE
Strength: 125MG
Dosage Form/Route: TABLET;ORAL
Application: N001546 | Product #001
Applicant: MERCK SHARP AND DOHME CORP
Approved: Approved Prior to Jan 1, 1982 | RLD: No | RS: No | Type: DISCN